FAERS Safety Report 5362449-2 (Version None)
Quarter: 2007Q2

REPORT INFORMATION
  Report Type: 
  Country: None (occurrence: None)
  Receive Date: 20070619
  Receipt Date: 20070611
  Transmission Date: 20071010
  Serious: Yes (Other)
  Sender: FDA-Public Use
  Company Number: FR-JNJFOC-20070602718

PATIENT
  Age: 55 Year
  Sex: Female

DRUGS (6)
  1. CAELYX [Suspect]
     Indication: OVARIAN CANCER
     Route: 042
  2. LEXOMIL [Concomitant]
     Route: 065
  3. DAFALGAN [Concomitant]
     Route: 065
  4. DAFLON [Concomitant]
     Route: 065
  5. DEROXAT [Concomitant]
     Route: 065
  6. INNOHEP [Concomitant]
     Indication: PHLEBITIS
     Route: 065

REACTIONS (1)
  - INTERTRIGO [None]
